FAERS Safety Report 9117895 (Version 2)
Quarter: 2013Q3

REPORT INFORMATION
  Report Type: Report from Study
  Country: DK (occurrence: DK)
  Receive Date: 20130225
  Receipt Date: 20130808
  Transmission Date: 20140515
  Serious: Yes (Hospitalization)
  Sender: FDA-Public Use
  Company Number: DK-BRISTOL-MYERS SQUIBB COMPANY-16023962

PATIENT
  Age: 70 Year
  Sex: Male

DRUGS (4)
  1. IPILIMUMAB [Suspect]
     Indication: PROSTATE CANCER
     Dosage: 1380 MG TOTAL DOSE
     Route: 042
     Dates: start: 20110525
  2. ZOLADEX [Concomitant]
     Dates: start: 20091113
  3. SIMVASTATIN [Concomitant]
     Dates: start: 20090220
  4. THYCAPZOL [Concomitant]
     Dates: start: 20110902

REACTIONS (2)
  - Hyperthyroidism [Not Recovered/Not Resolved]
  - Tachycardia [Recovered/Resolved]
